FAERS Safety Report 22331568 (Version 1)
Quarter: 2023Q2

REPORT INFORMATION
  Report Type: Spontaneous
  Country: FR (occurrence: FR)
  Receive Date: 20230517
  Receipt Date: 20230517
  Transmission Date: 20230722
  Serious: Yes (Hospitalization)
  Sender: FDA-Public Use
  Company Number: None

PATIENT
  Age: 51 Year
  Sex: Male
  Weight: 51 kg

DRUGS (10)
  1. ZYPREXA [Suspect]
     Active Substance: OLANZAPINE
     Indication: Catatonia
     Dosage: 15 MG, DAILY
     Route: 048
     Dates: start: 20230417
  2. CLOMIPRAMINE HYDROCHLORIDE [Suspect]
     Active Substance: CLOMIPRAMINE HYDROCHLORIDE
     Indication: Catatonia
     Dosage: 150 MG, DAILY
     Route: 048
     Dates: start: 20230417
  3. POTASSIUM CHLORIDE [Concomitant]
     Active Substance: POTASSIUM CHLORIDE
     Indication: Catatonia
     Dosage: UNK UNK, UNKNOWN
     Route: 065
     Dates: start: 20230417
  4. MOVICOL [Concomitant]
     Active Substance: POLYETHYLENE GLYCOL 3350\POTASSIUM CHLORIDE\SODIUM BICARBONATE\SODIUM CHLORIDE
     Indication: Catatonia
     Dosage: UNK UNK, UNKNOWN
     Route: 065
     Dates: start: 20230417
  5. VALIUM [Concomitant]
     Active Substance: DIAZEPAM
     Indication: Catatonia
     Dosage: UNK UNK, UNKNOWN
     Route: 065
     Dates: start: 20230417
  6. ALFUZOSIN HYDROCHLORIDE [Concomitant]
     Active Substance: ALFUZOSIN HYDROCHLORIDE
     Indication: Catatonia
     Dosage: UNK UNK, UNKNOWN
     Route: 065
     Dates: start: 20230417
  7. ACETAMINOPHEN [Concomitant]
     Active Substance: ACETAMINOPHEN
     Indication: Catatonia
     Dosage: UNK UNK, UNKNOWN
     Dates: start: 20230417
  8. ATIVAN [Concomitant]
     Active Substance: LORAZEPAM
     Indication: Catatonia
     Dates: start: 20230417
  9. ENOXAPARIN SODIUM [Concomitant]
     Active Substance: ENOXAPARIN SODIUM
     Indication: Catatonia
     Dates: start: 20230417
  10. CALCIUM PHOSPHATE, DIBASIC, ANHYDROUS\MAGNESIUM GLYCEROPHOSPHATE\PHOSP [Concomitant]
     Active Substance: CALCIUM PHOSPHATE, DIBASIC, ANHYDROUS\MAGNESIUM GLYCEROPHOSPHATE\PHOSPHORIC ACID\SODIUM PHOSPHATE, D
     Indication: Catatonia
     Dates: start: 20230417

REACTIONS (1)
  - Hepatic cytolysis [Not Recovered/Not Resolved]

NARRATIVE: CASE EVENT DATE: 20230422
